FAERS Safety Report 15720033 (Version 1)
Quarter: 2018Q4

REPORT INFORMATION
  Report Type: Report from Study
  Country: US (occurrence: US)
  Receive Date: 20181213
  Receipt Date: 20181213
  Transmission Date: 20190205
  Serious: Yes (Other)
  Sender: FDA-Public Use
  Company Number: US-BRISTOL-MYERS SQUIBB COMPANY-BMS-2018-113854

PATIENT
  Age: 60 Year
  Sex: Male

DRUGS (2)
  1. CEFALEXIN [Suspect]
     Active Substance: CEPHALEXIN
     Indication: CELLULITIS
     Dosage: UNK
     Route: 065
  2. WARFARIN SODIUM. [Suspect]
     Active Substance: WARFARIN SODIUM
     Indication: ATRIAL FIBRILLATION
     Dosage: 5 MG, UNK
     Route: 065
     Dates: end: 20181113

REACTIONS (3)
  - Cellulitis [Unknown]
  - International normalised ratio increased [Unknown]
  - Haematochezia [Recovered/Resolved]

NARRATIVE: CASE EVENT DATE: 20181114
